FAERS Safety Report 25828760 (Version 1)
Quarter: 2025Q3

REPORT INFORMATION
  Report Type: Spontaneous
  Country: US (occurrence: US)
  Receive Date: 20250922
  Receipt Date: 20250922
  Transmission Date: 20251020
  Serious: No
  Sender: ELI LILLY AND COMPANY
  Company Number: US-ELI_LILLY_AND_COMPANY-US202509016754

PATIENT
  Age: 68 Year
  Sex: Female

DRUGS (2)
  1. VERZENIO [Suspect]
     Active Substance: ABEMACICLIB
     Indication: Product used for unknown indication
     Route: 065
     Dates: start: 20250722
  2. VERZENIO [Suspect]
     Active Substance: ABEMACICLIB
     Route: 065
     Dates: start: 20250903

REACTIONS (1)
  - Hot flush [Unknown]
